FAERS Safety Report 4982787-2 (Version None)
Quarter: 2006Q2

REPORT INFORMATION
  Report Type: 
  Country: None (occurrence: None)
  Receive Date: 20060425
  Receipt Date: 20051206
  Transmission Date: 20061013
  Serious: Yes (Life-Threatening, Hospitalization)
  Sender: FDA-Public Use
  Company Number: CA-MERCK-0512CAN00044

PATIENT
  Age: 68 Year
  Sex: Female
  Weight: 116 kg

DRUGS (8)
  1. VIOXX [Suspect]
     Indication: OSTEOARTHRITIS
     Route: 048
     Dates: start: 20021101, end: 20040901
  2. LISINOPRIL [Concomitant]
     Indication: HYPERTENSION
     Route: 065
  3. RANITIDINE HYDROCHLORIDE [Concomitant]
     Indication: ANTICOAGULANT THERAPY
     Route: 065
  4. HYDROXYZINE HYDROCHLORIDE [Concomitant]
     Indication: HYPERSENSITIVITY
     Route: 065
  5. SIMVASTATIN [Concomitant]
     Indication: BLOOD CHOLESTEROL INCREASED
     Route: 065
     Dates: start: 20020101
  6. ASPIRIN [Concomitant]
     Route: 065
     Dates: start: 20030101
  7. ACETAMINOPHEN AND CODEINE PHOSPHATE [Concomitant]
     Indication: ARTHRITIS
     Route: 065
     Dates: start: 20030101
  8. CELECOXIB [Concomitant]
     Indication: ARTHRITIS
     Route: 065
     Dates: start: 20040101

REACTIONS (4)
  - ANHEDONIA [None]
  - CARDIOVASCULAR DISORDER [None]
  - FEAR [None]
  - MYOCARDIAL INFARCTION [None]
